FAERS Safety Report 11155390 (Version 5)
Quarter: 2015Q3

REPORT INFORMATION
  Report Type: Spontaneous
  Country: US (occurrence: US)
  Receive Date: 20150602
  Receipt Date: 20150721
  Transmission Date: 20151125
  Serious: Yes (Hospitalization, Disabling)
  Sender: FDA-Public Use
  Company Number: US-PFIZER INC-2015181299

PATIENT
  Age: 39 Year
  Sex: Female

DRUGS (4)
  1. TRIPTORELIN [Concomitant]
     Active Substance: TRIPTORELIN
     Indication: BREAST CANCER
     Dosage: 3.75 MG, MONTHLY
     Route: 030
     Dates: start: 20150404
  2. IBRANCE [Suspect]
     Active Substance: PALBOCICLIB
     Dosage: 100 MG, UNK
     Dates: start: 20150420, end: 20150528
  3. IBRANCE [Suspect]
     Active Substance: PALBOCICLIB
     Indication: BREAST CANCER METASTATIC
     Dosage: 125 MG, ONCE DAILY (QD) FOR 21 DAYS
     Dates: start: 20150416, end: 20150419
  4. LETROZOLE. [Concomitant]
     Active Substance: LETROZOLE
     Indication: BREAST CANCER
     Dosage: 2.5 MG, DAILY
     Route: 048
     Dates: start: 20150424

REACTIONS (8)
  - Hot flush [Unknown]
  - Headache [Unknown]
  - Asthenia [Recovered/Resolved]
  - Pain [Unknown]
  - Circulatory collapse [Unknown]
  - Decreased appetite [Unknown]
  - Nausea [Unknown]
  - Fatigue [Recovered/Resolved]

NARRATIVE: CASE EVENT DATE: 20150505
